FAERS Safety Report 4485317-7 (Version None)
Quarter: 2004Q4

REPORT INFORMATION
  Report Type: 
  Country: None (occurrence: None)
  Receive Date: 20041025
  Receipt Date: 20041025
  Transmission Date: 20050328
  Serious: Yes (Other)
  Sender: FDA-Public Use
  Company Number: None

PATIENT
  Sex: Female
  Weight: 84.369 kg

DRUGS (6)
  1. ZANTAC [Suspect]
     Indication: DIABETES MELLITUS
  2. ZESTRIL [Suspect]
     Indication: OESOPHAGITIS
  3. LASIX [Suspect]
  4. GLUCOTROL [Suspect]
  5. GLUCOPHAGE [Suspect]
  6. K-DUR 10 [Suspect]

REACTIONS (3)
  - DRUG INTOLERANCE [None]
  - NAUSEA [None]
  - PHARMACEUTICAL PRODUCT COMPLAINT [None]
